FAERS Safety Report 5638061-4 (Version None)
Quarter: 2008Q1

REPORT INFORMATION
  Report Type: 
  Country: None (occurrence: None)
  Receive Date: 20080226
  Receipt Date: 20080215
  Transmission Date: 20080703
  Serious: Yes (Hospitalization, Other)
  Sender: FDA-Public Use
  Company Number: GB-JNJFOC-20080103715

PATIENT
  Sex: Female
  Weight: 56 kg

DRUGS (11)
  1. REMICADE [Suspect]
     Route: 042
  2. REMICADE [Suspect]
     Route: 042
  3. REMICADE [Suspect]
     Indication: CROHN'S DISEASE
     Route: 042
  4. REMICADE [Suspect]
     Dosage: HAD FOUR DOSES
     Route: 042
  5. HYDROCORTISONE [Concomitant]
     Indication: PREMEDICATION
     Route: 042
  6. METHOTREXATE [Concomitant]
     Indication: CROHN'S DISEASE
     Route: 048
  7. WARFARIN SODIUM [Concomitant]
     Indication: PULMONARY EMBOLISM
     Dosage: DOSE: ^VARIABLE^
     Route: 048
  8. MESALAMINE [Concomitant]
     Indication: CROHN'S DISEASE
     Route: 048
  9. ESOMEPRAZOLE MAGNESIUM [Concomitant]
     Indication: SCLERODERMA
     Route: 048
  10. ESOMEPRAZOLE MAGNESIUM [Concomitant]
     Indication: GASTROOESOPHAGEAL REFLUX DISEASE
     Route: 048
  11. AMITRIPTYLINE HCL [Concomitant]
     Indication: PAIN IN EXTREMITY
     Route: 048

REACTIONS (13)
  - BLOOD PRESSURE INCREASED [None]
  - CHEST DISCOMFORT [None]
  - CROHN'S DISEASE [None]
  - DYSPNOEA [None]
  - FLUSHING [None]
  - HYPERHIDROSIS [None]
  - INFUSION RELATED REACTION [None]
  - INTESTINAL ISCHAEMIA [None]
  - LARGE INTESTINAL HAEMORRHAGE [None]
  - LARGE INTESTINE PERFORATION [None]
  - LOSS OF CONSCIOUSNESS [None]
  - RASH [None]
  - URINARY INCONTINENCE [None]
